FAERS Safety Report 8282188-8 (Version None)
Quarter: 2012Q2

REPORT INFORMATION
  Report Type: 
  Country: None (occurrence: None)
  Receive Date: 20120413
  Receipt Date: 20120403
  Transmission Date: 20120825
  Serious: Yes (Other)
  Sender: FDA-Public Use
  Company Number: PHHY2012FR029483

PATIENT
  Age: 66 Year
  Sex: Female

DRUGS (4)
  1. RASILEZ [Suspect]
     Indication: HYPERTENSION
     Dosage: 1 DF, QD IN THE MORNING
     Dates: start: 20090101
  2. XYLOCAINE [Concomitant]
     Dates: start: 20110505
  3. VALSARTAN [Suspect]
     Indication: HYPERTENSION
     Dosage: 160 MG, UNK
  4. VALSARTAN [Suspect]
     Dosage: 80 MG 2 DF, UNK

REACTIONS (5)
  - RHINITIS [None]
  - HAND FRACTURE [None]
  - EPISTAXIS [None]
  - FALL [None]
  - HYPERTENSIVE CRISIS [None]
